FAERS Safety Report 8060117-X (Version None)
Quarter: 2012Q1

REPORT INFORMATION
  Report Type: 
  Country: None (occurrence: None)
  Receive Date: 20120120
  Receipt Date: 20120110
  Transmission Date: 20120608
  Serious: Yes (Death)
  Sender: FDA-Public Use
  Company Number: SG-ALLERGAN-1200438US

PATIENT
  Age: 77 Year
  Sex: Female

DRUGS (1)
  1. PREDNISOLONE [Suspect]
     Indication: EYE DISORDER
     Route: 047

REACTIONS (2)
  - PNEUMONIA [None]
  - DRUG INEFFECTIVE [None]
